FAERS Safety Report 18318328 (Version 1)
Quarter: 2020Q3

REPORT INFORMATION
  Report Type: Spontaneous
  Country: US (occurrence: US)
  Receive Date: 20200925
  Receipt Date: 20200925
  Transmission Date: 20201103
  Serious: Yes (Hospitalization)
  Sender: FDA-Public Use
  Company Number: None

PATIENT
  Sex: Male

DRUGS (16)
  1. DICYCLOMINE [Concomitant]
     Active Substance: DICYCLOMINE HYDROCHLORIDE
  2. ONDANSETRON [Concomitant]
     Active Substance: ONDANSETRON
  3. DESOXIMETAS [Concomitant]
  4. UNZESS [Concomitant]
  5. TACROLIMUS. [Concomitant]
     Active Substance: TACROLIMUS
  6. TRIAMCINOLONE [Concomitant]
     Active Substance: TRIAMCINOLONE
  7. SMZ/TMP DS [Concomitant]
     Active Substance: SULFAMETHOXAZOLE\TRIMETHOPRIM
  8. KETOCONAZOLE. [Concomitant]
     Active Substance: KETOCONAZOLE
  9. MIRTAZAPINE. [Concomitant]
     Active Substance: MIRTAZAPINE
  10. POLYETH GLYC [Concomitant]
     Active Substance: POLYETHYLENE GLYCOLS
  11. HUMIRA [Suspect]
     Active Substance: ADALIMUMAB
     Route: 058
     Dates: start: 20190207
  12. CLOBETASOL [Concomitant]
     Active Substance: CLOBETASOL
  13. HYDROXYZ HCL [Concomitant]
     Active Substance: HYDROXYZINE HYDROCHLORIDE
  14. DICLOFENAC GEL [Concomitant]
     Active Substance: DICLOFENAC
  15. ALBUTEROL NEB [Concomitant]
     Active Substance: ALBUTEROL
  16. FINASTERIDE. [Concomitant]
     Active Substance: FINASTERIDE

REACTIONS (1)
  - Pancreatitis [None]
